FAERS Safety Report 12449598 (Version 1)
Quarter: 2016Q2

REPORT INFORMATION
  Report Type: Other
  Country: PT (occurrence: PT)
  Receive Date: 20160609
  Receipt Date: 20160609
  Transmission Date: 20160815
  Serious: No
  Sender: FDA-Public Use
  Company Number: PT-LUPIN PHARMACEUTICALS INC.-2016-02369

PATIENT
  Age: 3 Year
  Sex: Male

DRUGS (3)
  1. RIFAMPIN. [Suspect]
     Active Substance: RIFAMPIN
     Indication: BRUCELLOSIS
     Dosage: 20 MG/KG FOR 6 WEEKS.
     Route: 048
  2. COTRIMOXAZOLE [Suspect]
     Active Substance: SULFAMETHOXAZOLE\TRIMETHOPRIM
     Indication: BRUCELLOSIS
     Dosage: 50 MG/KG
     Route: 048
  3. GENTAMICIN. [Suspect]
     Active Substance: GENTAMICIN
     Indication: BRUCELLOSIS
     Dosage: 5 MG/KG (7 DAYS)
     Route: 042

REACTIONS (1)
  - Jarisch-Herxheimer reaction [Recovered/Resolved]
